FAERS Safety Report 17670092 (Version 2)
Quarter: 2022Q1

REPORT INFORMATION
  Report Type: Spontaneous
  Country: US (occurrence: US)
  Receive Date: 20200415
  Receipt Date: 20220128
  Transmission Date: 20220423
  Serious: No
  Sender: FDA-Public Use
  Company Number: US-PFIZER INC-2020154520

PATIENT
  Age: 68 Year
  Sex: Female
  Weight: 80.74 kg

DRUGS (2)
  1. ESTRING [Suspect]
     Active Substance: ESTRADIOL
     Indication: Menopause
     Dosage: 2 MG, CYCLIC[EVERY 3 MONTHS, 2MG]
     Route: 067
  2. ESTRING [Suspect]
     Active Substance: ESTRADIOL
     Indication: Hot flush

REACTIONS (7)
  - Underdose [Unknown]
  - Mood altered [Unknown]
  - Hot flush [Unknown]
  - Insomnia [Unknown]
  - Therapeutic product effect incomplete [Unknown]
  - Feeling jittery [Unknown]
  - Malaise [Unknown]
